FAERS Safety Report 13703925 (Version 3)
Quarter: 2017Q3

REPORT INFORMATION
  Report Type: Report from Study
  Country: US (occurrence: US)
  Receive Date: 20170629
  Receipt Date: 20170707
  Transmission Date: 20171127
  Serious: Yes (Hospitalization, Other)
  Sender: FDA-Public Use
  Company Number: US-AMGEN-USACT2016156878

PATIENT
  Age: 60 Year
  Sex: Male
  Weight: 76.82 kg

DRUGS (19)
  1. LISINOPRIL. [Concomitant]
     Active Substance: LISINOPRIL
     Dosage: 2.5 MG, QD
     Route: 048
     Dates: start: 20140110
  2. LIPITOR [Concomitant]
     Active Substance: ATORVASTATIN CALCIUM
     Dosage: 40 MG, QD
     Route: 048
     Dates: start: 20140110
  3. AMOXICILLIN. [Concomitant]
     Active Substance: AMOXICILLIN
     Dosage: 500 MG, TID
     Route: 048
     Dates: start: 20160803, end: 20160812
  4. DELSYM [Concomitant]
     Active Substance: DEXTROMETHORPHAN
     Dosage: 5 ML, UNK
     Route: 048
     Dates: start: 20140503
  5. NYSTATIN. [Concomitant]
     Active Substance: NYSTATIN
     Dosage: 3-4 TIME PER DAY, AS NEEDED
  6. DENOSUMAB [Suspect]
     Active Substance: DENOSUMAB
     Indication: PLASMA CELL MYELOMA
     Dosage: 120 MG, UNK
     Route: 065
     Dates: start: 20130214, end: 20160519
  7. BORTEZOMIB [Concomitant]
     Active Substance: BORTEZOMIB
     Dosage: UNK
     Dates: start: 20130214
  8. NITROGLYCERIN. [Concomitant]
     Active Substance: NITROGLYCERIN
     Indication: CHEST PAIN
     Dosage: 0.4 MG, TAKE 1 TABLET EVERY 5 MINUTES X 3 DOSES AS NEEDED
     Route: 060
     Dates: start: 20131219
  9. ASPIRIN. [Concomitant]
     Active Substance: ASPIRIN
     Dosage: 81 MG, QD
     Route: 048
     Dates: start: 20140110
  10. NORCO [Concomitant]
     Active Substance: ACETAMINOPHEN\HYDROCODONE BITARTRATE
     Indication: PAIN
     Dosage: 1 UNK, QID
     Route: 048
     Dates: start: 20140605, end: 20161216
  11. CLINDAMYCIN. [Concomitant]
     Active Substance: CLINDAMYCIN
     Dosage: 300-900 MG, UNK
     Dates: start: 20160820, end: 20161218
  12. CYCLOPHOSPHAMIDE. [Concomitant]
     Active Substance: CYCLOPHOSPHAMIDE
     Dosage: UNK
     Dates: start: 20130207
  13. CALCIUM [Concomitant]
     Active Substance: CALCIUM
     Dosage: 500 MG, UNK
     Route: 048
     Dates: start: 20131121
  14. COREG [Concomitant]
     Active Substance: CARVEDILOL
     Dosage: 3.125-6.25 MG, BID
     Route: 048
     Dates: start: 20140110
  15. IBUPROFEN. [Concomitant]
     Active Substance: IBUPROFEN
     Indication: PAIN
     Dosage: 2 UNK, 800 MG TID
     Route: 048
     Dates: start: 20150723
  16. ADVIL [Concomitant]
     Active Substance: IBUPROFEN
     Dosage: UNK
  17. DEXAMETHASONE. [Concomitant]
     Active Substance: DEXAMETHASONE
     Dosage: UNK
     Dates: start: 20130207
  18. VITAMIN D [Concomitant]
     Active Substance: CHOLECALCIFEROL
     Dosage: 400 IU, UNK
     Route: 048
     Dates: start: 20131121
  19. PREDNISONE. [Concomitant]
     Active Substance: PREDNISONE
     Indication: EAR PAIN
     Dosage: UNK

REACTIONS (3)
  - Osteonecrosis of jaw [Not Recovered/Not Resolved]
  - Cellulitis [Recovered/Resolved]
  - Ludwig angina [Recovered/Resolved]

NARRATIVE: CASE EVENT DATE: 20161013
